FAERS Safety Report 14134309 (Version 5)
Quarter: 2018Q1

REPORT INFORMATION
  Report Type: Report from Study
  Country: None (occurrence: US)
  Receive Date: 20171027
  Receipt Date: 20180324
  Transmission Date: 20180508
  Serious: Yes (Other)
  Sender: FDA-Public Use
  Company Number: US-ABBVIE-16K-163-1800383-00

PATIENT
  Age: 69 Year
  Sex: Female

DRUGS (2)
  1. HUMIRA [Suspect]
     Active Substance: ADALIMUMAB
     Indication: RHEUMATOID ARTHRITIS
     Route: 058
     Dates: start: 201511
  2. HUMIRA [Suspect]
     Active Substance: ADALIMUMAB
     Route: 058

REACTIONS (16)
  - Osteoarthritis [Not Recovered/Not Resolved]
  - Malaise [Recovered/Resolved]
  - Peripheral swelling [Unknown]
  - Visual impairment [Unknown]
  - Wheezing [Unknown]
  - Arthritis [Unknown]
  - Inappropriate schedule of drug administration [Recovered/Resolved]
  - Hypertension [Recovering/Resolving]
  - Goitre [Not Recovered/Not Resolved]
  - Incorrect dose administered [Unknown]
  - Thyroid mass [Not Recovered/Not Resolved]
  - Thyroid function test abnormal [Not Recovered/Not Resolved]
  - Arthralgia [Unknown]
  - Vomiting [Recovered/Resolved]
  - Pain [Unknown]
  - Device issue [Recovered/Resolved]

NARRATIVE: CASE EVENT DATE: 2015
